FAERS Safety Report 14912037 (Version 8)
Quarter: 2019Q2

REPORT INFORMATION
  Report Type: Spontaneous
  Country: US (occurrence: US)
  Receive Date: 20180518
  Receipt Date: 20190507
  Transmission Date: 20190711
  Serious: Yes (Other)
  Sender: FDA-Public Use
  Company Number: US-PFIZER INC-2018158956

PATIENT
  Age: 69 Year
  Sex: Female
  Weight: 102 kg

DRUGS (13)
  1. DIVALPROEX [Concomitant]
     Active Substance: DIVALPROEX SODIUM
     Indication: DEPRESSION
     Dosage: 250 MG, DAILY
     Route: 048
     Dates: start: 200005
  2. XELJANZ [Suspect]
     Active Substance: TOFACITINIB CITRATE
     Dosage: 5 MG, 1X/DAY
     Route: 048
     Dates: start: 20180201, end: 20190325
  3. LOSARTAN. [Concomitant]
     Active Substance: LOSARTAN
     Indication: HYPERTENSION
     Dosage: 50 MG, 1X/DAY
     Route: 048
     Dates: start: 201703
  4. TRAMADOL. [Concomitant]
     Active Substance: TRAMADOL
     Indication: PAIN
     Dosage: 50 MG, 3X/DAY
     Route: 048
     Dates: start: 201305
  5. PANTOPRAZOLE [Concomitant]
     Active Substance: PANTOPRAZOLE
     Indication: GASTRIC DISORDER
     Dosage: 40 MG, DAILY
     Route: 048
     Dates: start: 200005
  6. XELJANZ [Suspect]
     Active Substance: TOFACITINIB CITRATE
     Indication: RHEUMATOID ARTHRITIS
     Dosage: 5 MG, 1X/DAY
     Route: 048
     Dates: start: 201712
  7. CELECOXIB. [Concomitant]
     Active Substance: CELECOXIB
     Indication: OSTEOARTHRITIS
     Dosage: 200 MG, DAILY
     Route: 048
     Dates: start: 200806, end: 20180701
  8. ATENOLOL. [Concomitant]
     Active Substance: ATENOLOL
     Indication: HYPERTENSION
     Dosage: 50 MG, 2X/DAY
     Route: 048
     Dates: start: 2000
  9. VENLAFAXINE [Concomitant]
     Active Substance: VENLAFAXINE HYDROCHLORIDE
     Indication: DEPRESSION
     Dosage: 150 MG, 2X/DAY
     Route: 048
     Dates: start: 200005
  10. KLOR-CON [Concomitant]
     Active Substance: POTASSIUM CHLORIDE
     Indication: ELECTROLYTE SUBSTITUTION THERAPY
     Dosage: 20 MEQ, DAILY
     Route: 048
     Dates: start: 200005
  11. XELJANZ [Suspect]
     Active Substance: TOFACITINIB CITRATE
     Dosage: 5 MG, 1X/DAY (IN MORNING WHEN EAT)
     Route: 048
     Dates: start: 20180129, end: 2018
  12. HYDROXYCHLOROQUINE [Concomitant]
     Active Substance: HYDROXYCHLOROQUINE
     Indication: ARTHRITIS
     Dosage: 200 MG, (ON MONDAY, WEDNESDAY AND FRIDAY)
     Route: 048
     Dates: start: 200908
  13. LEVOTHYROXINE. [Concomitant]
     Active Substance: LEVOTHYROXINE
     Indication: HYPOTHYROIDISM
     Dosage: 0.088 MG, DAILY
     Route: 048
     Dates: start: 199508

REACTIONS (7)
  - Condition aggravated [Not Recovered/Not Resolved]
  - Renal impairment [Not Recovered/Not Resolved]
  - Fluid retention [Recovered/Resolved]
  - Product use issue [Not Recovered/Not Resolved]
  - Disease recurrence [Recovered/Resolved]
  - Peripheral swelling [Recovered/Resolved]
  - Pharyngitis streptococcal [Recovering/Resolving]

NARRATIVE: CASE EVENT DATE: 201712
